FAERS Safety Report 10411177 (Version 3)
Quarter: 2015Q3

REPORT INFORMATION
  Report Type: Spontaneous
  Country: US (occurrence: US)
  Receive Date: 20140826
  Receipt Date: 20150818
  Transmission Date: 20151125
  Serious: No
  Sender: FDA-Public Use
  Company Number: US-GILEAD-2014-0112916

PATIENT
  Sex: Male

DRUGS (2)
  1. LETAIRIS [Suspect]
     Active Substance: AMBRISENTAN
     Indication: PRODUCT USED FOR UNKNOWN INDICATION
     Dosage: 5 MG, QD
     Route: 065
     Dates: start: 20140804
  2. ADEMPAS [Suspect]
     Active Substance: RIOCIGUAT
     Route: 065

REACTIONS (5)
  - Insomnia [Unknown]
  - Decreased appetite [Unknown]
  - Restlessness [Unknown]
  - Asthenia [Unknown]
  - Dyspnoea [Unknown]
